FAERS Safety Report 17684285 (Version 1)
Quarter: 2020Q2

REPORT INFORMATION
  Report Type: Spontaneous
  Country: US (occurrence: US)
  Receive Date: 20200418
  Receipt Date: 20200418
  Transmission Date: 20200714
  Serious: Yes (Other)
  Sender: FDA-Public Use
  Company Number: None

PATIENT
  Age: 28 Year
  Sex: Female

DRUGS (1)
  1. CUTAQUIG [Suspect]
     Active Substance: HUMAN IMMUNOGLOBULIN G
     Indication: PRIMARY IMMUNODEFICIENCY SYNDROME
     Dosage: ?          OTHER FREQUENCY:ONCE A WEEK;OTHER ROUTE:SUBCUTANEOUS?
     Route: 058
     Dates: start: 20200311, end: 20200415

REACTIONS (7)
  - Urticaria [None]
  - Infusion related reaction [None]
  - Blood pressure decreased [None]
  - Swelling face [None]
  - Rash [None]
  - Swelling of eyelid [None]
  - Chest discomfort [None]

NARRATIVE: CASE EVENT DATE: 20200418
